FAERS Safety Report 24991642 (Version 1)
Quarter: 2025Q1

REPORT INFORMATION
  Report Type: Spontaneous
  Country: US (occurrence: US)
  Receive Date: 20250220
  Receipt Date: 20250220
  Transmission Date: 20250408
  Serious: Yes (Other)
  Sender: LOREAL
  Company Number: US-LOREAL USA SD, INC.-2025LOR00008

PATIENT
  Sex: Female

DRUGS (1)
  1. CERAVE ITCH RELIEF MOISTURIZING [Suspect]
     Active Substance: PRAMOXINE HYDROCHLORIDE
     Indication: Pruritus
     Route: 061
     Dates: start: 20250131, end: 20250131

REACTIONS (13)
  - Chemical burn [Recovering/Resolving]
  - Dyspnoea [Recovering/Resolving]
  - Skin burning sensation [Recovering/Resolving]
  - Pain of skin [Recovering/Resolving]
  - Erythema [Recovering/Resolving]
  - Headache [Unknown]
  - Migraine [Recovered/Resolved]
  - Skin swelling [Recovering/Resolving]
  - Pruritus [Unknown]
  - Skin texture abnormal [Unknown]
  - Skin exfoliation [Not Recovered/Not Resolved]
  - Pain in extremity [Not Recovered/Not Resolved]
  - Dry skin [Not Recovered/Not Resolved]

NARRATIVE: CASE EVENT DATE: 20250101
